FAERS Safety Report 9213058 (Version 2)
Quarter: 2013Q2

REPORT INFORMATION
  Report Type: Spontaneous
  Country: US (occurrence: None)
  Receive Date: 20120820
  Receipt Date: 20121120
  Transmission Date: 20140414
  Serious: Yes (Other)
  Sender: FDA-Public Use
  Company Number: 1000036869

PATIENT
  Age: 65 Year
  Sex: Male

DRUGS (4)
  1. VIIBRYD [Suspect]
     Dates: start: 2012
  2. DEXILANT (DEXLANSOPRAZOLE) [Concomitant]
  3. HIGH BLOOD PRESSURE MEDICATION NOS (HIGH BLOOD PRESSURE MEDICATION NOS) [Concomitant]
  4. ANTIBIOTIC NOS (ANTIBIOTIC NOS) [Concomitant]

REACTIONS (6)
  - Insomnia [None]
  - Feeling abnormal [None]
  - Headache [None]
  - Disturbance in attention [None]
  - Fatigue [None]
  - Memory impairment [None]
